FAERS Safety Report 9242569 (Version 1)
Quarter: 2013Q2

REPORT INFORMATION
  Report Type: Spontaneous
  Country: US (occurrence: US)
  Receive Date: 20130419
  Receipt Date: 20130419
  Transmission Date: 20140414
  Serious: No
  Sender: FDA-Public Use
  Company Number: US-PFIZER INC-2013121159

PATIENT
  Age: 55 Year
  Sex: Female
  Weight: 75.74 kg

DRUGS (3)
  1. NORVASC [Suspect]
     Indication: HYPERTENSION
     Dosage: 5 MG, DAILY
     Dates: end: 20130412
  2. DALIRESP [Concomitant]
     Indication: LUNG DISORDER
     Dosage: 500 UG, DAILY
  3. CARDIZEM [Concomitant]
     Indication: HYPERTENSION
     Dosage: UNK
     Dates: start: 201304

REACTIONS (1)
  - Heart rate increased [Recovered/Resolved]
